FAERS Safety Report 6432250-7 (Version None)
Quarter: 2009Q4

REPORT INFORMATION
  Report Type: 
  Country: None (occurrence: None)
  Receive Date: 20091109
  Receipt Date: 20091027
  Transmission Date: 20100525
  Serious: Yes (Hospitalization)
  Sender: FDA-Public Use
  Company Number: JP-AMGEN-US345320

PATIENT
  Sex: Female

DRUGS (13)
  1. ENBREL [Suspect]
     Indication: RHEUMATOID ARTHRITIS
     Dosage: 25 MG 2X/WEEK, LYOPHILIZED
     Route: 058
     Dates: start: 20080324, end: 20081101
  2. ENBREL [Suspect]
     Route: 058
     Dates: start: 20080519, end: 20081101
  3. PROGRAF [Concomitant]
     Route: 048
     Dates: start: 20060201
  4. BAKTAR [Concomitant]
     Route: 048
     Dates: start: 20060201
  5. LASIX [Concomitant]
     Route: 048
  6. ISCOTIN [Concomitant]
     Route: 048
     Dates: start: 20080324, end: 20090124
  7. BROCIN-CODEINE [Concomitant]
     Dosage: 2 ML
     Route: 048
     Dates: start: 20081023, end: 20081101
  8. SELBEX [Concomitant]
     Route: 048
  9. GASTER [Concomitant]
     Route: 048
  10. BIOFERMIN [Concomitant]
     Route: 048
  11. FOSAMAX [Concomitant]
     Route: 048
  12. LENDORMIN [Concomitant]
     Route: 048
  13. PYDOXAL [Concomitant]
     Route: 048
     Dates: start: 20080324, end: 20090324

REACTIONS (2)
  - DERMATOMYOSITIS [None]
  - INTERSTITIAL LUNG DISEASE [None]
